FAERS Safety Report 7283357-6 (Version None)
Quarter: 2011Q1

REPORT INFORMATION
  Report Type: 
  Country: None (occurrence: None)
  Receive Date: 20110209
  Receipt Date: 20110207
  Transmission Date: 20110831
  Serious: No
  Sender: FDA-Public Use
  Company Number: US-ROXANE LABORATORIES, INC.-2011-RO-00157RO

PATIENT
  Sex: Female

DRUGS (4)
  1. DEXAMETHASONE [Suspect]
     Indication: ASTHMA
     Dosage: 4 MG
     Route: 048
  2. DEXAMETHASONE [Suspect]
     Dosage: 2 MG
     Route: 048
  3. DEXAMETHASONE [Suspect]
     Dosage: 1 MG
     Route: 048
  4. DEXAMETHASONE [Suspect]
     Dosage: 3 MG
     Route: 048

REACTIONS (1)
  - TREMOR [None]
